FAERS Safety Report 8186622-3 (Version None)
Quarter: 2012Q1

REPORT INFORMATION
  Report Type: 
  Country: None (occurrence: None)
  Receive Date: 20120302
  Receipt Date: 20120302
  Transmission Date: 20120608
  Serious: Yes (Hospitalization)
  Sender: FDA-Public Use
  Company Number: None

PATIENT
  Age: 61 Year
  Sex: Male
  Weight: 91.2 kg

DRUGS (1)
  1. TRAZODONE HCL [Suspect]
     Indication: SLEEP DISORDER
     Dosage: 50 MG PRN PO
     Route: 048
     Dates: start: 20120119, end: 20120128

REACTIONS (9)
  - HYPOPERFUSION [None]
  - RENAL DISORDER [None]
  - RENAL FAILURE ACUTE [None]
  - DIZZINESS [None]
  - ASTHENIA [None]
  - HYPOPHAGIA [None]
  - EARLY SATIETY [None]
  - ORTHOSTATIC HYPOTENSION [None]
  - DIABETIC AUTONOMIC NEUROPATHY [None]
